FAERS Safety Report 12801656 (Version 1)
Quarter: 2016Q4

REPORT INFORMATION
  Report Type: Spontaneous
  Country: US (occurrence: US)
  Receive Date: 20161003
  Receipt Date: 20161003
  Transmission Date: 20170207
  Serious: No
  Sender: FDA-Public Use
  Company Number: US-PFIZER INC-2016456334

PATIENT
  Age: 52 Year
  Sex: Female
  Weight: 71.67 kg

DRUGS (1)
  1. IRINOTECAN HCL [Suspect]
     Active Substance: IRINOTECAN HYDROCHLORIDE
     Dosage: 158 MG, JUST ONCE
     Route: 042
     Dates: start: 20160927

REACTIONS (1)
  - Hypoaesthesia oral [Recovered/Resolved]
